FAERS Safety Report 20007417 (Version 1)
Quarter: 2021Q4

REPORT INFORMATION
  Report Type: Report from Study
  Country: US (occurrence: US)
  Receive Date: 20211029
  Receipt Date: 20211029
  Transmission Date: 20220303
  Serious: No
  Sender: FDA-Public Use
  Company Number: US-BIOVITRUM-2021US8428

PATIENT
  Sex: Female

DRUGS (5)
  1. SYNAGIS [Suspect]
     Active Substance: PALIVIZUMAB
     Indication: Premature baby
     Dosage: 50MG/0.5ML
     Route: 030
  2. SYNAGIS [Suspect]
     Active Substance: PALIVIZUMAB
     Route: 030
  3. DIURIL [Concomitant]
     Active Substance: CHLOROTHIAZIDE
  4. BUDESONIDE [Concomitant]
     Active Substance: BUDESONIDE
  5. SPIRONOLACTONE [Concomitant]
     Active Substance: SPIRONOLACTONE

REACTIONS (3)
  - Irritability [Unknown]
  - Gastroenteritis viral [Unknown]
  - Pyrexia [Unknown]
